FAERS Safety Report 7043427 (Version 18)
Quarter: 2024Q4

REPORT INFORMATION
  Report Type: Report from Study
  Country: JP (occurrence: JP)
  Receive Date: 20090707
  Receipt Date: 20241216
  Transmission Date: 20250115
  Serious: Yes (Hospitalization)
  Sender: ROCHE
  Company Number: JP-GENENTECH-286118

PATIENT
  Age: 83 Year
  Sex: Male

DRUGS (4)
  1. RANIBIZUMAB [Suspect]
     Active Substance: RANIBIZUMAB
     Indication: Age-related macular degeneration
     Dosage: 0.05 ML, UNK
     Route: 031
  2. BEVACIZUMAB [Suspect]
     Active Substance: BEVACIZUMAB
     Indication: Age-related macular degeneration
     Dosage: UNK
     Route: 031
     Dates: start: 20090213
  3. BEVACIZUMAB [Suspect]
     Active Substance: BEVACIZUMAB
     Dosage: 1.25 MG, UNK
     Route: 031
     Dates: start: 20090323
  4. TRIAMCINOLONE ACETONIDE [Suspect]
     Active Substance: TRIAMCINOLONE ACETONIDE
     Indication: Age-related macular degeneration
     Dosage: UNK
     Route: 050
     Dates: start: 20090213

REACTIONS (7)
  - Eye inflammation [Unknown]
  - Necrosis [Unknown]
  - Cytomegalovirus chorioretinitis [Recovered/Resolved]
  - Eye disorder [Unknown]
  - Retinal disorder [Unknown]
  - Retinal vasculitis [Unknown]
  - Vitrectomy [Unknown]

NARRATIVE: CASE EVENT DATE: 20090523
